FAERS Safety Report 12958991 (Version 1)
Quarter: 2016Q4

REPORT INFORMATION
  Report Type: Spontaneous
  Country: US (occurrence: US)
  Receive Date: 20161121
  Receipt Date: 20161121
  Transmission Date: 20170207
  Serious: Yes (Other)
  Sender: FDA-Public Use
  Company Number: US-AMGEN-USASP2016161113

PATIENT
  Age: 69 Year
  Sex: Female

DRUGS (26)
  1. NOVOLOG [Concomitant]
     Active Substance: INSULIN ASPART
     Dosage: 100 UNIT, (3 WITH BREAKFAST, 4 WITH LUNCH AND 6 WITH DINNER)
  2. ENBREL [Suspect]
     Active Substance: ETANERCEPT
     Indication: PRODUCT USED FOR UNKNOWN INDICATION
     Dosage: UNK
     Route: 065
  3. HUMIRA [Concomitant]
     Active Substance: ADALIMUMAB
     Dosage: 40 MG, UNK
     Route: 058
  4. CAPSAICIN. [Concomitant]
     Active Substance: CAPSAICIN
     Dosage: UNK, TID
     Route: 061
  5. OCUVITE [Concomitant]
     Active Substance: VITAMINS
     Dosage: 1 TABLET BY MOUTH DAILY
     Route: 048
  6. MORPHINE [Suspect]
     Active Substance: MORPHINE
     Indication: PRODUCT USED FOR UNKNOWN INDICATION
     Dosage: UNK
     Route: 065
  7. VITAMIN D [Concomitant]
     Active Substance: CHOLECALCIFEROL
     Dosage: 1000 IU, QD
     Route: 048
  8. DULOXETINE. [Concomitant]
     Active Substance: DULOXETINE
     Dosage: 60 MG, QD
     Route: 048
  9. MAGNESIUM OXIDE. [Concomitant]
     Active Substance: MAGNESIUM OXIDE
     Dosage: 400 MG, QD
     Route: 048
  10. PROLIA [Suspect]
     Active Substance: DENOSUMAB
     Indication: PRODUCT USED FOR UNKNOWN INDICATION
     Dosage: UNK UNK, Q6MO
     Route: 058
  11. HYDROXYCHLOROQUINE [Concomitant]
     Active Substance: HYDROXYCHLOROQUINE
     Dosage: 200 MG, QHS
     Route: 048
  12. METOPROLOL SUCCINATE. [Concomitant]
     Active Substance: METOPROLOL SUCCINATE
     Dosage: 50 MG, BID
  13. NIFEDIPINE. [Concomitant]
     Active Substance: NIFEDIPINE
     Dosage: 30 MG, QD
     Route: 048
  14. CIPROFLOXACIN. [Concomitant]
     Active Substance: CIPROFLOXACIN
     Dosage: 500 MG, BID
     Route: 048
  15. PRISTIQ EXTENDED-RELEASE [Concomitant]
     Active Substance: DESVENLAFAXINE SUCCINATE
     Dosage: 25 MG, QD
     Route: 048
  16. DULOXETINE. [Concomitant]
     Active Substance: DULOXETINE
     Dosage: 25 MG, UNK (SR 24 HR)
  17. VICODIN [Suspect]
     Active Substance: ACETAMINOPHEN\HYDROCODONE BITARTRATE
     Indication: PRODUCT USED FOR UNKNOWN INDICATION
     Dosage: UNK
     Route: 065
  18. ASPIRIN. [Concomitant]
     Active Substance: ASPIRIN
     Dosage: 81 MG, QD
     Route: 048
  19. BUSPIRONE [Concomitant]
     Active Substance: BUSPIRONE HYDROCHLORIDE
     Dosage: 10 MG, BID
     Route: 048
  20. LEVEMIR [Concomitant]
     Active Substance: INSULIN DETEMIR
     Dosage: 16 UNIT, QHS
  21. DEPLIN [Concomitant]
     Active Substance: LEVOMEFOLATE CALCIUM
     Dosage: 7.5 MG, QD
     Route: 048
  22. METHOTREXATE. [Suspect]
     Active Substance: METHOTREXATE
     Indication: PRODUCT USED FOR UNKNOWN INDICATION
     Dosage: UNK
     Route: 065
  23. BENTYL [Concomitant]
     Active Substance: DICYCLOMINE HYDROCHLORIDE
     Indication: IRRITABLE BOWEL SYNDROME
     Dosage: 10 MG, Q8H
     Route: 048
  24. GABAPENTIN. [Concomitant]
     Active Substance: GABAPENTIN
     Dosage: 300 MG, TID
     Route: 048
  25. NIFEDIPINE. [Concomitant]
     Active Substance: NIFEDIPINE
     Dosage: 60 MG, QD
     Route: 048
  26. GLUCOSE [Concomitant]
     Active Substance: DEXTROSE
     Dosage: UNK, AS NECESSARY

REACTIONS (19)
  - Irritable bowel syndrome [Unknown]
  - Sleep disorder [Unknown]
  - Drug hypersensitivity [Unknown]
  - Type 2 diabetes mellitus [Unknown]
  - Vomiting [Unknown]
  - Liver function test increased [Unknown]
  - Cough [Unknown]
  - Bladder disorder [Unknown]
  - Blood cholesterol abnormal [Unknown]
  - Hallucination [Unknown]
  - Dyspnoea [Unknown]
  - Uveitis [Unknown]
  - Pain [Unknown]
  - Wound [Unknown]
  - Eye oedema [Unknown]
  - Diabetic neuropathy [Unknown]
  - Confusional state [Unknown]
  - Nausea [Unknown]
  - Wheezing [Unknown]
